FAERS Safety Report 7150545-9 (Version None)
Quarter: 2010Q4

REPORT INFORMATION
  Report Type: 
  Country: None (occurrence: None)
  Receive Date: 20101206
  Receipt Date: 20101206
  Transmission Date: 20110411
  Serious: Yes (Death, Hospitalization)
  Sender: FDA-Public Use
  Company Number: None

PATIENT
  Age: 81 Year
  Sex: Male
  Weight: 66 kg

DRUGS (2)
  1. CLINDAMYCIN [Suspect]
     Indication: CLOSTRIDIAL INFECTION
     Dosage: 300 MG QID PO
     Route: 048
     Dates: start: 20100918, end: 20100925
  2. CEFTRIAXONE [Suspect]
     Indication: CLOSTRIDIAL INFECTION
     Dosage: 600 MG QID IV
     Route: 042
     Dates: start: 20100918, end: 20100921

REACTIONS (1)
  - CLOSTRIDIAL INFECTION [None]
